FAERS Safety Report 15981896 (Version 1)
Quarter: 2019Q1

REPORT INFORMATION
  Report Type: Spontaneous
  Country: US (occurrence: US)
  Receive Date: 20190219
  Receipt Date: 20190219
  Transmission Date: 20190418
  Serious: No
  Sender: FDA-Public Use
  Company Number: US-BAYER-2019-032988

PATIENT
  Sex: Male
  Weight: 53 kg

DRUGS (5)
  1. PSYLLIUM HYDROPHILIC MUCILLOID [Suspect]
     Active Substance: PSYLLIUM HUSK
     Dosage: UNK
  2. OXYCODONE [Concomitant]
     Active Substance: OXYCODONE
  3. KEYTRUDA [Concomitant]
     Active Substance: PEMBROLIZUMAB
  4. MIRALAX [Suspect]
     Active Substance: POLYETHYLENE GLYCOL 3350
     Indication: GASTROINTESTINAL DISORDER
     Dosage: 0.5 DF, PRN
     Route: 048
  5. BOOST [Suspect]
     Active Substance: DIETARY SUPPLEMENT

REACTIONS (4)
  - Nausea [Recovered/Resolved]
  - Incorrect dose administered [Unknown]
  - Nausea [None]
  - Wrong product administered [Unknown]
